FAERS Safety Report 14166049 (Version 3)
Quarter: 2018Q2

REPORT INFORMATION
  Report Type: Spontaneous
  Country: RU (occurrence: RU)
  Receive Date: 20171107
  Receipt Date: 20180417
  Transmission Date: 20180711
  Serious: Yes (Hospitalization, Other)
  Sender: FDA-Public Use
  Company Number: RU-ASTRAZENECA-2017SF12451

PATIENT
  Age: 60 Year
  Sex: Male
  Weight: 75 kg

DRUGS (7)
  1. ACECARDOL [Concomitant]
     Active Substance: ASPIRIN
  2. LIPRIMAR [Concomitant]
     Active Substance: ATORVASTATIN CALCIUM
  3. MAXIDIN [Concomitant]
  4. BRILINTA [Suspect]
     Active Substance: TICAGRELOR
     Indication: ANGINA UNSTABLE
     Route: 048
     Dates: start: 20160620
  5. BETALOC ZOK [Concomitant]
     Active Substance: METOPROLOL SUCCINATE
  6. HARTIL [Concomitant]
     Active Substance: RAMIPRIL
  7. BRILINTA [Suspect]
     Active Substance: TICAGRELOR
     Indication: MYOCARDIAL INFARCTION
     Route: 048
     Dates: start: 20160620

REACTIONS (8)
  - Product prescribing issue [Unknown]
  - Myocardial infarction [Unknown]
  - Heart rate increased [Unknown]
  - Coronary artery disease [Unknown]
  - Blood creatinine increased [Unknown]
  - Blood pressure increased [Not Recovered/Not Resolved]
  - Dyspnoea [Not Recovered/Not Resolved]
  - Off label use [Unknown]

NARRATIVE: CASE EVENT DATE: 20160620
